FAERS Safety Report 7538744-5 (Version None)
Quarter: 2011Q2

REPORT INFORMATION
  Report Type: 
  Country: None (occurrence: None)
  Receive Date: 20110610
  Receipt Date: 20110607
  Transmission Date: 20111010
  Serious: No
  Sender: FDA-Public Use
  Company Number: US-PFIZER INC-2011124006

PATIENT
  Sex: Female
  Weight: 65.76 kg

DRUGS (1)
  1. DETROL LA [Suspect]
     Indication: URINARY INCONTINENCE
     Dosage: 4 MG, 1X/DAY
     Route: 048
     Dates: start: 20110525, end: 20110525

REACTIONS (4)
  - NAUSEA [None]
  - DIZZINESS [None]
  - MALAISE [None]
  - DRUG INEFFECTIVE [None]
